FAERS Safety Report 18043823 (Version 1)
Quarter: 2020Q3

REPORT INFORMATION
  Report Type: Spontaneous
  Country: US (occurrence: US)
  Receive Date: 20200718
  Receipt Date: 20200718
  Transmission Date: 20201103
  Serious: No
  Sender: FDA-Public Use
  Company Number: None

PATIENT
  Age: 34 Year
  Sex: Female
  Weight: 103.05 kg

DRUGS (4)
  1. NOVOLOG [Concomitant]
     Active Substance: INSULIN ASPART
  2. NATURE MADE MULTIVITAMIN [Concomitant]
  3. QSYMIA [Suspect]
     Active Substance: PHENTERMINE HYDROCHLORIDE\TOPIRAMATE
     Indication: WEIGHT CONTROL
     Route: 048
     Dates: start: 20200706, end: 20200715
  4. MEDTRONIC INSULIN PUMP [Concomitant]
     Active Substance: DEVICE

REACTIONS (5)
  - Vision blurred [None]
  - Ocular discomfort [None]
  - Lacrimation increased [None]
  - Eye swelling [None]
  - Intraocular pressure increased [None]

NARRATIVE: CASE EVENT DATE: 20200716
